FAERS Safety Report 9370727 (Version 1)
Quarter: 2013Q2

REPORT INFORMATION
  Report Type: Spontaneous
  Country: CA (occurrence: CA)
  Receive Date: 20130626
  Receipt Date: 20130626
  Transmission Date: 20140414
  Serious: Yes (Life-Threatening, Hospitalization, Other)
  Sender: FDA-Public Use
  Company Number: CA-B.I. PHARMACEUTICALS,INC./RIDGEFIELD-2013-CN-01139CN

PATIENT
  Age: 70 Year
  Sex: Male

DRUGS (7)
  1. PRADAX [Suspect]
     Dosage: 300 MG
     Route: 048
  2. AMIODARONE [Concomitant]
  3. AMLODIPINE [Concomitant]
  4. MAVIK [Concomitant]
  5. PANTOPRAZOLE [Concomitant]
  6. PREDNISONE [Concomitant]
  7. ULORIC [Concomitant]

REACTIONS (6)
  - Asthenia [Unknown]
  - Cardiac tamponade [Unknown]
  - Depressed level of consciousness [Unknown]
  - Dizziness [Unknown]
  - Hypotension [Unknown]
  - Pericardial haemorrhage [Unknown]
